FAERS Safety Report 4423512-3 (Version None)
Quarter: 2004Q3

REPORT INFORMATION
  Report Type: 
  Country: None (occurrence: None)
  Receive Date: 20040806
  Receipt Date: 20040719
  Transmission Date: 20050211
  Serious: Yes (Death, Other)
  Sender: FDA-Public Use
  Company Number: EWC040740035

PATIENT
  Age: 67 Year
  Sex: Female

DRUGS (1)
  1. XIGRIS [Suspect]
     Indication: SEPSIS
     Dosage: 24 MG
     Dates: start: 20040710, end: 20040713

REACTIONS (4)
  - HAEMORRHAGIC CEREBRAL INFARCTION [None]
  - INTRAVENTRICULAR HAEMORRHAGE [None]
  - ISCHAEMIC CEREBRAL INFARCTION [None]
  - MULTI-ORGAN FAILURE [None]
